FAERS Safety Report 9332576 (Version 1)
Quarter: 2013Q2

REPORT INFORMATION
  Report Type: Spontaneous
  Country: GB (occurrence: None)
  Receive Date: 20130603
  Receipt Date: 20130603
  Transmission Date: 20140414
  Serious: Yes (Life-Threatening, Hospitalization)
  Sender: FDA-Public Use
  Company Number: GER/UKI/13/0029716

PATIENT
  Age: 72 Year
  Sex: Male

DRUGS (9)
  1. CLOPIDOGREL (CLOPIDOGREL) [Suspect]
     Indication: PROPHYLAXIS
     Dosage: 1 IN 1 D?
     Route: 048
     Dates: start: 201206
  2. ASPIRIN (ACETYLSALICYLIC ACID) [Suspect]
     Indication: PROPHYLAXIS
     Dosage: 1 IN 1 D
     Route: 048
     Dates: start: 201206, end: 20120717
  3. EPLERENONE [Suspect]
     Indication: ACUTE MYOCARDIAL INFARCTION
     Dosage: 1 IN 1 D
     Route: 048
     Dates: start: 20120625, end: 20120625
  4. ATORVASTATIN (ATORVASTATIN) [Concomitant]
  5. BISOPROLOL  (BISOPROLOL) [Concomitant]
  6. FUROSEMIDE (FUROSEMIDE) [Concomitant]
  7. GLYCERYL TRINITRATE (GLYCERYL TRINITRATE) [Concomitant]
  8. OMEPRAZOLE (OMEPRAZOLE) [Concomitant]
  9. PERINDOPRIL (PERINDOPRIL) [Concomitant]

REACTIONS (5)
  - Iron deficiency anaemia [None]
  - Faeces discoloured [None]
  - Oesophagitis [None]
  - Telangiectasia [None]
  - Large intestine polyp [None]
